FAERS Safety Report 24751879 (Version 1)
Quarter: 2024Q4

REPORT INFORMATION
  Report Type: Spontaneous
  Country: US (occurrence: US)
  Receive Date: 20241219
  Receipt Date: 20241219
  Transmission Date: 20250114
  Serious: No
  Sender: PACIRA
  Company Number: US-ORG100016242-2024000556

PATIENT
  Age: 31 Year
  Sex: Female
  Weight: 55 kg

DRUGS (1)
  1. EXPAREL [Suspect]
     Active Substance: BUPIVACAINE
     Indication: Product used for unknown indication
     Dosage: 266 (20 ML) SOLUTION
     Route: 058
     Dates: start: 20231012, end: 20231012

REACTIONS (2)
  - Malaise [Recovered/Resolved]
  - Post procedural fever [Recovered/Resolved]

NARRATIVE: CASE EVENT DATE: 20231012
